FAERS Safety Report 16260474 (Version 2)
Quarter: 2019Q2

REPORT INFORMATION
  Report Type: Report from Study
  Country: JP (occurrence: JP)
  Receive Date: 20190501
  Receipt Date: 20190611
  Transmission Date: 20190711
  Serious: Yes (Death, Hospitalization, Other)
  Sender: FDA-Public Use
  Company Number: JP-INCYTE CORPORATION-2018IN007951

PATIENT

DRUGS (16)
  1. JAKAVI [Suspect]
     Active Substance: RUXOLITINIB
     Dosage: 10 MG, BID
     Route: 048
     Dates: start: 20160210, end: 20160322
  2. IRRADIATED RED BLOOD CELLS-LEUKOCYTES REDUCED [Concomitant]
     Active Substance: HUMAN RED BLOOD CELL
     Dosage: 2 U/L, UNK
     Route: 065
     Dates: start: 20180508, end: 20180508
  3. JAKAVI [Suspect]
     Active Substance: RUXOLITINIB
     Dosage: 5 MG, BID
     Dates: start: 20180302, end: 20180608
  4. IRRADIATED RED BLOOD CELLS-LEUKOCYTES REDUCED [Concomitant]
     Active Substance: HUMAN RED BLOOD CELL
     Dosage: 2 U/L, UNK
     Route: 065
     Dates: start: 20171003, end: 20171003
  5. IRRADIATED RED BLOOD CELLS-LEUKOCYTES REDUCED [Concomitant]
     Active Substance: HUMAN RED BLOOD CELL
     Dosage: 2 U/L, UNK
     Route: 065
     Dates: start: 20180212, end: 20180212
  6. IRRADIATED RED BLOOD CELLS-LEUKOCYTES REDUCED [Concomitant]
     Active Substance: HUMAN RED BLOOD CELL
     Dosage: 2 U/L, UNK
     Route: 065
     Dates: start: 20180410, end: 20180410
  7. JAKAVI [Suspect]
     Active Substance: RUXOLITINIB
     Dosage: 15 MG, BID
     Route: 048
     Dates: start: 20160323, end: 20180208
  8. IRRADIATED RED BLOOD CELLS-LEUKOCYTES REDUCED [Concomitant]
     Active Substance: HUMAN RED BLOOD CELL
     Dosage: 2 U/L, UNK
     Route: 065
     Dates: start: 20171128, end: 20171128
  9. IRRADIATED RED BLOOD CELLS-LEUKOCYTES REDUCED [Concomitant]
     Active Substance: HUMAN RED BLOOD CELL
     Dosage: 2 U/L, UNK
     Route: 065
     Dates: start: 20180222, end: 20180222
  10. IRRADIATED RED BLOOD CELLS-LEUKOCYTES REDUCED [Concomitant]
     Active Substance: HUMAN RED BLOOD CELL
     Dosage: 2 U/L, UNK
     Route: 065
     Dates: start: 20180323, end: 20180323
  11. IRRADIATED RED BLOOD CELLS-LEUKOCYTES REDUCED [Concomitant]
     Active Substance: HUMAN RED BLOOD CELL
     Dosage: 2 U/L, UNK
     Route: 065
     Dates: start: 20180605, end: 20180605
  12. JAKAVI [Suspect]
     Active Substance: RUXOLITINIB
     Indication: POLYCYTHAEMIA VERA
     Dosage: 5 MG, BID
     Route: 048
     Dates: start: 20160120, end: 20160209
  13. IRRADIATED RED BLOOD CELLS-LEUKOCYTES REDUCED [Concomitant]
     Active Substance: HUMAN RED BLOOD CELL
     Dosage: 2 U/L, UNK
     Route: 065
     Dates: start: 20180522, end: 20180522
  14. IRRADIATED RED BLOOD CELLS-LEUKOCYTES REDUCED [Concomitant]
     Active Substance: HUMAN RED BLOOD CELL
     Dosage: 2 U/L, UNK
     Route: 065
     Dates: start: 20180209, end: 20180209
  15. IRRADIATED RED BLOOD CELLS-LEUKOCYTES REDUCED [Concomitant]
     Active Substance: HUMAN RED BLOOD CELL
     Indication: POLYCYTHAEMIA VERA
     Dosage: 2 U/L, UNK
     Route: 065
     Dates: start: 20170808, end: 20170808
  16. IRRADIATED RED BLOOD CELLS-LEUKOCYTES REDUCED [Concomitant]
     Active Substance: HUMAN RED BLOOD CELL
     Dosage: 2 U/L, UNK
     Route: 065
     Dates: start: 20180123, end: 20180123

REACTIONS (9)
  - Blood creatinine increased [Not Recovered/Not Resolved]
  - Haemoglobin decreased [Not Recovered/Not Resolved]
  - Transformation to acute myeloid leukaemia [Fatal]
  - Drug ineffective [Unknown]
  - Polycythaemia vera [Unknown]
  - Blood pressure systolic increased [Unknown]
  - Sepsis [Recovered/Resolved]
  - Liver disorder [Recovered/Resolved]
  - Liver disorder [Not Recovered/Not Resolved]

NARRATIVE: CASE EVENT DATE: 20160128
